FAERS Safety Report 9188403 (Version 1)
Quarter: 2013Q1

REPORT INFORMATION
  Report Type: Spontaneous
  Country: US (occurrence: US)
  Receive Date: 20130325
  Receipt Date: 20130325
  Transmission Date: 20140127
  Serious: Yes (Death)
  Sender: FDA-Public Use
  Company Number: US-ELI_LILLY_AND_COMPANY-US201303005849

PATIENT
  Age: 56 Year
  Sex: Male

DRUGS (7)
  1. HUMALOG LISPRO [Suspect]
     Indication: DIABETES MELLITUS
     Dosage: UNK, UNKNOWN
  2. LEVOTHYROXINE [Concomitant]
     Dosage: 125 MG, UNKNOWN
  3. SIMVASTATIN [Concomitant]
     Dosage: 40 MG, UNKNOWN
  4. TAMYL [Concomitant]
     Dosage: 400 MG, UNKNOWN
  5. METFORMIN [Concomitant]
     Dosage: 850 MG, UNKNOWN
  6. ASPIRIN [Concomitant]
     Dosage: 81 MG, UNKNOWN
  7. COZAAR [Concomitant]
     Dosage: 100 MG, UNKNOWN

REACTIONS (2)
  - Sudden death [Fatal]
  - Unevaluable event [Unknown]
